FAERS Safety Report 6711954-2 (Version None)
Quarter: 2010Q2

REPORT INFORMATION
  Report Type: 
  Country: None (occurrence: None)
  Receive Date: 20100505
  Receipt Date: 20100423
  Transmission Date: 20101027
  Serious: Yes (Death, Hospitalization)
  Sender: FDA-Public Use
  Company Number: ES-CEPHALON-2010000781

PATIENT
  Sex: Male

DRUGS (4)
  1. TREANDA [Suspect]
     Indication: B-CELL LYMPHOMA
     Dates: start: 20100128, end: 20100129
  2. RITUXIMAB [Suspect]
     Indication: B-CELL LYMPHOMA
     Route: 042
     Dates: start: 20100128, end: 20100129
  3. MITOXANTRONE [Suspect]
     Indication: B-CELL LYMPHOMA
     Route: 042
     Dates: start: 20100128, end: 20100129
  4. DEXAMETHASONE [Suspect]
     Indication: B-CELL LYMPHOMA
     Route: 048
     Dates: start: 20100128, end: 20100129

REACTIONS (3)
  - EJECTION FRACTION DECREASED [None]
  - PLEURAL EFFUSION [None]
  - RESPIRATORY TRACT INFECTION [None]
